FAERS Safety Report 10558403 (Version 1)
Quarter: 2014Q4

REPORT INFORMATION
  Report Type: Spontaneous
  Country: GB (occurrence: GB)
  Receive Date: 20141031
  Receipt Date: 20141031
  Transmission Date: 20150529
  Serious: Yes (Other)
  Sender: FDA-Public Use
  Company Number: GB-TEVA-517898ISR

PATIENT
  Age: 69 Year
  Sex: Male
  Weight: 69 kg

DRUGS (7)
  1. NITROFURANTOIN. [Suspect]
     Active Substance: NITROFURANTOIN
     Dates: start: 20140929
  2. OMEPRAZOLE. [Concomitant]
     Active Substance: OMEPRAZOLE
     Dates: start: 20140609, end: 20141001
  3. TRIMETHOPRIM. [Concomitant]
     Active Substance: TRIMETHOPRIM
     Dates: start: 20140908, end: 20140915
  4. LOSARTAN [Concomitant]
     Active Substance: LOSARTAN
     Dates: start: 20140519, end: 20140902
  5. ATORVASTATIN [Concomitant]
     Active Substance: ATORVASTATIN
     Dates: start: 20140519, end: 20140902
  6. AMLODIPINE [Concomitant]
     Active Substance: AMLODIPINE BESYLATE
     Dates: start: 20140609, end: 20141001
  7. ASPIRIN. [Concomitant]
     Active Substance: ASPIRIN
     Dates: start: 20140609, end: 20141001

REACTIONS (1)
  - Rash erythematous [Recovering/Resolving]

NARRATIVE: CASE EVENT DATE: 20141011
